FAERS Safety Report 7468383-6 (Version None)
Quarter: 2011Q2

REPORT INFORMATION
  Report Type: 
  Country: None (occurrence: None)
  Receive Date: 20110509
  Receipt Date: 20110426
  Transmission Date: 20111010
  Serious: Yes (Hospitalization, Other)
  Sender: FDA-Public Use
  Company Number: JP-CELGENEUS-087-21880-10122450

PATIENT
  Sex: Female
  Weight: 33.1 kg

DRUGS (9)
  1. DEPAS [Concomitant]
     Indication: PROPHYLAXIS
     Dosage: 1 MILLIGRAM
     Route: 048
     Dates: start: 20100901
  2. BAKTAR [Concomitant]
     Indication: PROPHYLAXIS
     Dosage: 4 TABLET
     Route: 048
     Dates: start: 20100901
  3. VFEND [Concomitant]
     Indication: PROPHYLAXIS
     Dosage: 8 TABLET
     Route: 048
     Dates: start: 20100901
  4. ACTONEL [Concomitant]
     Indication: PROPHYLAXIS
     Dosage: 1 TABLET
     Route: 048
     Dates: start: 20100901
  5. OMEPRAL [Concomitant]
     Indication: PROPHYLAXIS
     Dosage: 20 MILLIGRAM
     Route: 048
     Dates: start: 20100901
  6. PROGRAF [Concomitant]
     Indication: OBLITERATIVE BRONCHIOLITIS
     Dosage: 1 MILLIGRAM
     Route: 048
     Dates: start: 20100901
  7. REVLIMID [Suspect]
     Indication: MULTIPLE MYELOMA
     Dosage: 25 MILLIGRAM
     Route: 048
     Dates: start: 20100901, end: 20100909
  8. DEXAMETHASONE [Suspect]
     Indication: MULTIPLE MYELOMA
     Dosage: 20 MILLIGRAM
     Route: 048
     Dates: start: 20100902, end: 20100909
  9. PREDNISOLONE [Concomitant]
     Dosage: 5 MILLIGRAM
     Route: 048
     Dates: start: 20100901

REACTIONS (2)
  - DIARRHOEA [None]
  - ACUTE GRAFT VERSUS HOST DISEASE IN INTESTINE [None]
